FAERS Safety Report 7323695 (Version 2)
Quarter: 2012Q4

REPORT INFORMATION
  Report Type: 
  Country: US (occurrence: US)
  Receive Date: 20100318
  Receipt Date: 20121001
  Transmission Date: 20130627
  Serious: Yes (Death)
  Sender: FDA-Public Use
  Company Number: US-MYLANLABS-2010S1004156

PATIENT
  Age: 38 Year
  Sex: Male

DRUGS (13)
  1. FENTANYL TRANSDERMAL SYSTEM [Suspect]
     Indication: PAIN
     Route: 062
     Dates: end: 20081201
  2. TEMAZEPAM [Suspect]
     Route: 048
     Dates: end: 2008
  3. DIAZEPAM [Suspect]
     Route: 048
     Dates: end: 200812
  4. OXYCODONE [Concomitant]
  5. EFFEXOR XR [Concomitant]
  6. ZOLPIDEM TARTRATE [Concomitant]
  7. LISINOPRIL [Concomitant]
  8. METFORMIN [Concomitant]
  9. HUMULIN R [Concomitant]
     Dosage: as directed
  10. LANTUS [Concomitant]
  11. CIALIS [Concomitant]
  12. ASPIRIN (E.C.) [Concomitant]
  13. ELOCON [Concomitant]
     Route: 061

REACTIONS (3)
  - Cardiopulmonary failure [Fatal]
  - Overdose [Fatal]
  - Toxicity to various agents [Fatal]
